FAERS Safety Report 4615765-3 (Version None)
Quarter: 2005Q1

REPORT INFORMATION
  Report Type: 
  Country: None (occurrence: None)
  Receive Date: 20050317
  Receipt Date: 20050308
  Transmission Date: 20050727
  Serious: Yes (Death, Life-Threatening, Hospitalization)
  Sender: FDA-Public Use
  Company Number: 2005-02-0218

PATIENT
  Age: 49 Year
  Sex: Male
  Weight: 118.8424 kg

DRUGS (21)
  1. PEG-INTRON [Suspect]
     Indication: HEPATITIS C
     Dosage: 180 MCG QWK SUBCUTANEOUS
     Route: 058
     Dates: start: 20040323, end: 20041213
  2. REBETOL [Suspect]
     Indication: HEPATITIS C
     Dosage: 1600 MG QD ORAL
     Route: 048
     Dates: start: 20040323, end: 20041213
  3. NEUPOGEN [Concomitant]
  4. EPOGEN [Concomitant]
  5. COMBIVENT [Concomitant]
  6. AMMONIUM LACTATE [Concomitant]
  7. ZANAFLEX (TIZANIDINE HCL) [Concomitant]
  8. CAPSAICIN [Concomitant]
  9. FEXOFENADINE HCL [Concomitant]
  10. FUROSEMIDE [Concomitant]
  11. QUETIAPINE FUMURATE [Concomitant]
  12. VERAPAMIL [Concomitant]
  13. GABAPENTIN [Concomitant]
  14. GUAIFENESIN [Concomitant]
  15. HYDROCOCODONE [Concomitant]
  16. NPH INSULIN [Concomitant]
  17. REGULAR INSULIN [Concomitant]
  18. LAMOTRIGINE [Concomitant]
  19. LORAZEPAM [Concomitant]
  20. PAXIL [Concomitant]
  21. VIAGRA [Concomitant]

REACTIONS (11)
  - ACUTE RESPIRATORY DISTRESS SYNDROME [None]
  - CARDIO-RESPIRATORY ARREST [None]
  - CHEST PAIN [None]
  - HYPOXIA [None]
  - NEUTROPENIA [None]
  - PNEUMONIA [None]
  - RESPIRATORY ACIDOSIS [None]
  - RESPIRATORY FAILURE [None]
  - RESTLESSNESS [None]
  - SEPSIS [None]
  - STAPHYLOCOCCAL INFECTION [None]
